FAERS Safety Report 5492354-2 (Version None)
Quarter: 2007Q4

REPORT INFORMATION
  Report Type: 
  Country: None (occurrence: None)
  Receive Date: 20071015
  Receipt Date: 20070718
  Transmission Date: 20080405
  Serious: No
  Sender: FDA-Public Use
  Company Number: 2007SP002574

PATIENT
  Age: 32 Year
  Sex: Female
  Weight: 92.9874 kg

DRUGS (4)
  1. LUNESTA [Suspect]
     Indication: SOMNOLENCE
     Dosage: 2 MG; HS; ORAL;  3 MG; HS; ORAL
     Route: 048
     Dates: start: 20050801, end: 20050801
  2. LUNESTA [Suspect]
     Indication: SOMNOLENCE
     Dosage: 2 MG; HS; ORAL;  3 MG; HS; ORAL
     Route: 048
     Dates: start: 20050801
  3. LEVOXYL [Concomitant]
  4. METFORMIN HCL [Concomitant]

REACTIONS (2)
  - DYSGEUSIA [None]
  - INSOMNIA [None]
